FAERS Safety Report 6944615-5 (Version None)
Quarter: 2010Q3

REPORT INFORMATION
  Report Type: 
  Country: None (occurrence: None)
  Receive Date: 20100827
  Receipt Date: 20100818
  Transmission Date: 20110219
  Serious: Yes (Disabling, Other)
  Sender: FDA-Public Use
  Company Number: JP-ASTRAZENECA-2010SE37425

PATIENT
  Age: 28701 Day
  Sex: Female
  Weight: 43.7 kg

DRUGS (11)
  1. SEROQUEL [Interacting]
     Indication: DELIRIUM
     Route: 048
     Dates: start: 20100722, end: 20100805
  2. SEROQUEL [Interacting]
     Indication: COGNITIVE DISORDER
     Route: 048
     Dates: start: 20100722, end: 20100805
  3. MICONAZOLE NITRATE [Suspect]
     Route: 002
     Dates: start: 20100723, end: 20100805
  4. WARFARIN [Interacting]
     Route: 048
     Dates: end: 20100805
  5. LENDORMIN [Concomitant]
     Indication: INSOMNIA
     Dates: end: 20100805
  6. DIGOXIN [Concomitant]
     Dates: end: 20100805
  7. GASTER [Concomitant]
     Dates: end: 20100805
  8. YOKUKAN-SAN [Concomitant]
     Dates: start: 20100723, end: 20100805
  9. MAGLAX [Concomitant]
     Dates: end: 20100805
  10. SENNOSIDE [Concomitant]
     Route: 048
     Dates: end: 20100805
  11. VASOLAN [Concomitant]
     Route: 048
     Dates: end: 20100805

REACTIONS (2)
  - DRUG INTERACTION [None]
  - INTERNATIONAL NORMALISED RATIO INCREASED [None]
